FAERS Safety Report 21002893 (Version 1)
Quarter: 2022Q2

REPORT INFORMATION
  Report Type: Spontaneous
  Country: US (occurrence: None)
  Receive Date: 20220623
  Receipt Date: 20220623
  Transmission Date: 20220721
  Serious: Yes (Hospitalization)
  Sender: FDA-Public Use
  Company Number: None

PATIENT
  Age: 86 Year
  Sex: Male

DRUGS (22)
  1. CAPECITABINE [Suspect]
     Active Substance: CAPECITABINE
     Indication: Chronic lymphocytic leukaemia
     Dosage: FREQUENCY : TWICE A DAY;?
     Route: 048
  2. ACITRETIN [Concomitant]
     Active Substance: ACITRETIN
  3. ATORVASTATIN [Concomitant]
     Active Substance: ATORVASTATIN
  4. CALCIUM 500 [Concomitant]
  5. FISH OIL [Concomitant]
     Active Substance: FISH OIL
  6. GLUCOSAMINE [Concomitant]
     Active Substance: GLUCOSAMINE
  7. HEPARIN [Concomitant]
     Active Substance: HEPARIN SODIUM
  8. IBUPROFEN [Concomitant]
     Active Substance: IBUPROFEN
  9. KEPPRA [Concomitant]
     Active Substance: LEVETIRACETAM
  10. LAMISIL [Concomitant]
     Active Substance: TERBINAFINE HYDROCHLORIDE
  11. LISINOPRIL [Concomitant]
     Active Substance: LISINOPRIL
  12. LOSARTAN [Concomitant]
     Active Substance: LOSARTAN
  13. LUTEIN [Concomitant]
     Active Substance: LUTEIN
  14. NORVASC [Concomitant]
     Active Substance: AMLODIPINE BESYLATE
  15. PREDNISONE [Concomitant]
     Active Substance: PREDNISONE
  16. MINERALS\VITAMINS [Concomitant]
     Active Substance: MINERALS\VITAMINS
  17. RITUXAN [Concomitant]
     Active Substance: RITUXIMAB
  18. SORATANE [Concomitant]
  19. TAMSULOSIN [Concomitant]
     Active Substance: TAMSULOSIN
  20. TRIAMCINOLONE [Concomitant]
     Active Substance: TRIAMCINOLONE
  21. VITAMIN C [Concomitant]
     Active Substance: ASCORBIC ACID
  22. VITAMIN D3 [Concomitant]
     Active Substance: CHOLECALCIFEROL

REACTIONS (1)
  - Hospitalisation [None]
